FAERS Safety Report 5656026-3 (Version None)
Quarter: 2008Q1

REPORT INFORMATION
  Report Type: 
  Country: None (occurrence: None)
  Receive Date: 20080307
  Receipt Date: 20080225
  Transmission Date: 20080703
  Serious: Yes (Other)
  Sender: FDA-Public Use
  Company Number: CA-PFIZER INC-2008018918

PATIENT
  Age: 34 Year
  Sex: Male

DRUGS (2)
  1. CHANTIX [Suspect]
     Indication: SMOKING CESSATION THERAPY
     Route: 048
  2. ALCOHOL [Interacting]

REACTIONS (4)
  - AGGRESSION [None]
  - DRUG INTERACTION [None]
  - FEELING ABNORMAL [None]
  - HEADACHE [None]
